FAERS Safety Report 5018042-4 (Version None)
Quarter: 2006Q2

REPORT INFORMATION
  Report Type: 
  Country: None (occurrence: None)
  Receive Date: 20060530
  Receipt Date: 20050107
  Transmission Date: 20061013
  Serious: Yes (Other)
  Sender: FDA-Public Use
  Company Number: 2004111720

PATIENT
  Age: 45 Year
  Sex: Female
  Weight: 60 kg

DRUGS (8)
  1. LYRICA [Suspect]
     Indication: NEURALGIA
     Dosage: 150 MG (75 MG, 2 IN 1 D),ORAL
     Route: 048
     Dates: start: 20041001, end: 20041101
  2. AMITRIPTYLINE HCL [Concomitant]
  3. CARBAMAZEPINE [Concomitant]
  4. ESTRADIOL VALERATE [Concomitant]
  5. COMBIVENT [Concomitant]
  6. IPRATROPIUM BROMIDE [Concomitant]
  7. BECLOMETHASONE DIPROPIONATE [Concomitant]
  8. LATANOPROST [Concomitant]

REACTIONS (5)
  - APHASIA [None]
  - BREAST PAIN [None]
  - DYSPHASIA [None]
  - OCULAR HYPERAEMIA [None]
  - TEARFULNESS [None]
